FAERS Safety Report 8388262-X (Version None)
Quarter: 2012Q2

REPORT INFORMATION
  Report Type: 
  Country: None (occurrence: None)
  Receive Date: 20120525
  Receipt Date: 20120521
  Transmission Date: 20120825
  Serious: Yes (Other)
  Sender: FDA-Public Use
  Company Number: US-PFIZER INC-2012123207

PATIENT
  Sex: Female
  Weight: 56.689 kg

DRUGS (2)
  1. FLONASE [Concomitant]
     Indication: SINUSITIS
     Dosage: UNK
  2. AZITHROMYCIN [Suspect]
     Indication: SINUSITIS
     Dosage: UNK, ONCE DAILY
     Route: 048
     Dates: end: 20120401

REACTIONS (2)
  - CHEST PAIN [None]
  - SINUSITIS [None]
